FAERS Safety Report 19136174 (Version 6)
Quarter: 2022Q4

REPORT INFORMATION
  Report Type: Spontaneous
  Country: US (occurrence: US)
  Receive Date: 20210414
  Receipt Date: 20221122
  Transmission Date: 20230112
  Serious: No
  Sender: FDA-Public Use
  Company Number: US-SA-SAC20210409000170

PATIENT
  Age: 49 Year
  Sex: Male

DRUGS (2)
  1. CAPRELSA [Suspect]
     Active Substance: VANDETANIB
     Indication: Thyroid cancer
     Dosage: 300 MG, QD
     Route: 048
     Dates: start: 20210325
  2. SYNTHROID [Concomitant]
     Active Substance: LEVOTHYROXINE SODIUM
     Dosage: UNK
     Route: 065

REACTIONS (8)
  - Blood calcitonin decreased [Unknown]
  - Neck pain [Unknown]
  - Swelling [Unknown]
  - Hunger [Unknown]
  - Gastrointestinal sounds abnormal [Unknown]
  - Acne [Unknown]
  - Diarrhoea [Unknown]
  - Dermatitis acneiform [Unknown]
